FAERS Safety Report 11808901 (Version 1)
Quarter: 2015Q4

REPORT INFORMATION
  Report Type: Spontaneous
  Country: US (occurrence: US)
  Receive Date: 20151207
  Receipt Date: 20151207
  Transmission Date: 20160305
  Serious: Yes (Hospitalization)
  Sender: FDA-Public Use
  Company Number: US-SA-2015SA136433

PATIENT
  Sex: Female
  Weight: 72.5 kg

DRUGS (4)
  1. VALIUM [Concomitant]
     Active Substance: DIAZEPAM
  2. TETRACAINE. [Concomitant]
     Active Substance: TETRACAINE
  3. DEMEROL [Suspect]
     Active Substance: MEPERIDINE HYDROCHLORIDE
     Indication: ENDOSCOPY
     Route: 065
  4. VISTARIL [Suspect]
     Active Substance: HYDROXYZINE PAMOATE
     Indication: ENDOSCOPY
     Route: 065

REACTIONS (3)
  - Duodenal ulcer [Recovered/Resolved]
  - Drug hypersensitivity [Recovered/Resolved]
  - Cellulitis [Recovered/Resolved]
